FAERS Safety Report 24207679 (Version 1)
Quarter: 2024Q3

REPORT INFORMATION
  Report Type: Spontaneous
  Country: US (occurrence: US)
  Receive Date: 20240814
  Receipt Date: 20240814
  Transmission Date: 20241016
  Serious: No
  Sender: NOVITIUM PHARMA
  Company Number: US-NOVITIUMPHARMA-2024USNVP01528

PATIENT
  Age: 66 Year
  Sex: Male
  Weight: 96.2 kg

DRUGS (1)
  1. BISOPROLOL FUMARATE [Suspect]
     Active Substance: BISOPROLOL FUMARATE
     Indication: Product used for unknown indication
     Route: 048
     Dates: start: 20240606, end: 20240726

REACTIONS (7)
  - Urticaria [Recovered/Resolved]
  - Blister [Recovered/Resolved]
  - Serum ferritin increased [Recovered/Resolved]
  - Haemorrhage [Unknown]
  - Pruritus [Recovered/Resolved]
  - Oedema [Unknown]
  - Product use in unapproved indication [Unknown]
